FAERS Safety Report 10034412 (Version 1)
Quarter: 2014Q1

REPORT INFORMATION
  Report Type: Spontaneous
  Country: US (occurrence: None)
  Receive Date: 20140321
  Receipt Date: 20140321
  Transmission Date: 20141002
  Serious: Yes (Life-Threatening, Hospitalization)
  Sender: FDA-Public Use
  Company Number: 2014P1002242

PATIENT
  Age: 59 Year
  Sex: Male

DRUGS (4)
  1. AMLODIPINE [Suspect]
     Dosage: X1
     Route: 048
  2. LISINOPRIL [Suspect]
     Dosage: X1
     Route: 048
  3. METFORMIN [Suspect]
     Dosage: X1
     Route: 048
  4. SIMVASTATIN [Suspect]
     Dosage: X1
     Route: 048

REACTIONS (9)
  - Suicide attempt [None]
  - Hypotension [None]
  - Bradycardia [None]
  - Hypoglycaemia [None]
  - Lactic acidosis [None]
  - Renal failure acute [None]
  - Metabolic acidosis [None]
  - Overdose [None]
  - Exposure via ingestion [None]
